FAERS Safety Report 8576280 (Version 5)
Quarter: 2013Q2

REPORT INFORMATION
  Report Type: Spontaneous
  Country: US (occurrence: US)
  Receive Date: 20120523
  Receipt Date: 20130403
  Transmission Date: 20140414
  Serious: Yes (Hospitalization)
  Sender: FDA-Public Use
  Company Number: US-B.I. PHARMACEUTICALS,INC./RIDGEFIELD-2012-BP-10904BP

PATIENT
  Age: 72 Year
  Sex: Female
  Weight: 95.25 kg

DRUGS (20)
  1. PRADAXA [Suspect]
     Indication: ANTICOAGULANT THERAPY
     Dosage: 150 MG
     Route: 048
     Dates: start: 20110520, end: 20110707
  2. PRADAXA [Suspect]
     Indication: ATRIAL FIBRILLATION
  3. PRADAXA [Suspect]
     Indication: THROMBOSIS PROPHYLAXIS
  4. VITAMIN D [Concomitant]
     Dosage: 1000 U
     Route: 048
  5. VITAMIN D [Concomitant]
     Route: 048
  6. CILOSTAZOL [Concomitant]
     Indication: PERIPHERAL ARTERIAL OCCLUSIVE DISEASE
     Dosage: 200 MG
     Route: 048
     Dates: start: 2011
  7. MULTAQ [Concomitant]
     Dosage: 800 MG
     Route: 048
     Dates: start: 2011
  8. FUROSEMIDE [Concomitant]
     Indication: OEDEMA PERIPHERAL
     Dosage: 40 MG
     Route: 048
     Dates: end: 2011
  9. GLIMEPIRIDE [Concomitant]
     Dosage: 4 MG
     Route: 048
     Dates: start: 2007
  10. LOPRESSOR [Concomitant]
     Indication: HYPERTENSION
     Dosage: 300 MG
     Route: 048
     Dates: start: 2011
  11. POTASSIUM CHLORIDE [Concomitant]
     Indication: OEDEMA PERIPHERAL
     Dosage: 40 MEQ
     Route: 048
  12. PRAVACHOL [Concomitant]
     Indication: DYSLIPIDAEMIA
     Dosage: 40 MG
     Route: 048
     Dates: end: 2011
  13. PRAVACHOL [Concomitant]
     Indication: HYPERLIPIDAEMIA
  14. PRAVACHOL [Concomitant]
     Indication: CAROTID ARTERY DISEASE
  15. ZANTAC [Concomitant]
     Dosage: 300 MG
     Route: 048
     Dates: end: 2011
  16. ONGLYZA [Concomitant]
     Dosage: 5 MG
     Route: 048
     Dates: end: 2011
  17. HYDROMORPHONE [Concomitant]
     Dates: end: 2011
  18. NITROSTAT [Concomitant]
     Dates: end: 2011
  19. ONDANSATE [Concomitant]
     Dates: end: 2011
  20. CIPROFLOXACIN [Concomitant]
     Dates: end: 2011

REACTIONS (7)
  - Gastrointestinal haemorrhage [Recovered/Resolved]
  - Rectal haemorrhage [Recovered/Resolved]
  - Haematuria [Unknown]
  - Haemorrhagic anaemia [Recovered/Resolved]
  - Coagulopathy [Unknown]
  - Haemorrhoids [Unknown]
  - Diverticulum intestinal [Unknown]
